FAERS Safety Report 7512862-X (Version None)
Quarter: 2011Q2

REPORT INFORMATION
  Report Type: 
  Country: None (occurrence: None)
  Receive Date: 20110525
  Receipt Date: 20110525
  Transmission Date: 20111010
  Serious: Yes (Hospitalization)
  Sender: FDA-Public Use
  Company Number: None

PATIENT
  Sex: Female
  Weight: 61.55 kg

DRUGS (2)
  1. PEMETREXED [Suspect]
     Dosage: 805 MG
  2. CISPLATIN [Suspect]
     Dosage: 80.5 MG

REACTIONS (5)
  - FATIGUE [None]
  - TACHYCARDIA [None]
  - NAUSEA [None]
  - DECREASED APPETITE [None]
  - ABSCESS [None]
